FAERS Safety Report 16120292 (Version 1)
Quarter: 2019Q1

REPORT INFORMATION
  Report Type: Spontaneous
  Country: US (occurrence: US)
  Receive Date: 20190326
  Receipt Date: 20190326
  Transmission Date: 20190418
  Serious: No
  Sender: FDA-Public Use
  Company Number: US-009507513-1903USA010235

PATIENT
  Age: 20 Year
  Sex: Female
  Weight: 56.2 kg

DRUGS (1)
  1. NEXPLANON [Suspect]
     Active Substance: ETONOGESTREL
     Indication: CONTRACEPTION
     Dosage: UNK
     Route: 059
     Dates: start: 20180413

REACTIONS (2)
  - Road traffic accident [Not Recovered/Not Resolved]
  - Nuclear magnetic resonance imaging [Unknown]

NARRATIVE: CASE EVENT DATE: 20190121
